FAERS Safety Report 16962743 (Version 1)
Quarter: 2019Q4

REPORT INFORMATION
  Report Type: Spontaneous
  Country: NL (occurrence: NL)
  Receive Date: 20191025
  Receipt Date: 20191025
  Transmission Date: 20200122
  Serious: Yes (Hospitalization)
  Sender: FDA-Public Use
  Company Number: NVSC2019NL015483

PATIENT
  Age: 2 Year
  Sex: Male

DRUGS (4)
  1. HYDROCHLOROTHIAZIDE. [Interacting]
     Active Substance: HYDROCHLOROTHIAZIDE
     Indication: HYPOGLYCAEMIA
  2. DIAZOXIDE [Interacting]
     Active Substance: DIAZOXIDE
     Indication: HYPOGLYCAEMIA
     Dosage: 5 MG/KG, Q24H
     Route: 048
  3. HYDROCHLOROTHIAZIDE. [Suspect]
     Active Substance: HYDROCHLOROTHIAZIDE
     Indication: HYPERINSULINISM
     Dosage: 2 MG/KG, Q24H
     Route: 048
  4. DIAZOXIDE [Interacting]
     Active Substance: DIAZOXIDE
     Indication: HYPERINSULINISM
     Dosage: 10 MG/KG, Q24H
     Route: 048

REACTIONS (7)
  - Epistaxis [Unknown]
  - Haematemesis [Unknown]
  - Petechiae [Unknown]
  - Rectal haemorrhage [Unknown]
  - Product use in unapproved indication [Unknown]
  - Drug interaction [Unknown]
  - Thrombocytopenia [Recovered/Resolved]
